FAERS Safety Report 5004146-9 (Version None)
Quarter: 2006Q2

REPORT INFORMATION
  Report Type: 
  Country: None (occurrence: None)
  Receive Date: 20060517
  Receipt Date: 20060509
  Transmission Date: 20061013
  Serious: Yes (Hospitalization)
  Sender: FDA-Public Use
  Company Number: US-JNJFOC-20060502783

PATIENT
  Age: 64 Year
  Sex: Female
  Weight: 59.88 kg

DRUGS (3)
  1. DURAGESIC-100 [Suspect]
     Route: 062
  2. FOSAMAX [Concomitant]
     Indication: OSTEOPOROSIS
     Route: 048
  3. NEXIUM [Concomitant]
     Indication: GASTRIC ULCER
     Route: 048

REACTIONS (1)
  - RECTAL HAEMORRHAGE [None]
